FAERS Safety Report 15189362 (Version 1)
Quarter: 2018Q3

REPORT INFORMATION
  Report Type: Spontaneous
  Country: US (occurrence: US)
  Receive Date: 20180625
  Receipt Date: 20180625
  Transmission Date: 20181010
  Serious: No
  Sender: FDA-Public Use
  Company Number: None

PATIENT
  Sex: Female

DRUGS (1)
  1. ROSUVASTATIN. [Suspect]
     Active Substance: ROSUVASTATIN

REACTIONS (5)
  - Mouth swelling [None]
  - Wheezing [None]
  - Pruritus [None]
  - Chest discomfort [None]
  - Dry mouth [None]
